FAERS Safety Report 7291967-5 (Version None)
Quarter: 2011Q1

REPORT INFORMATION
  Report Type: 
  Country: None (occurrence: None)
  Receive Date: 20110214
  Receipt Date: 20110205
  Transmission Date: 20110831
  Serious: Yes (Other)
  Sender: FDA-Public Use
  Company Number: IT-BAXTER-2011BH003080

PATIENT
  Age: 55 Year
  Sex: Male

DRUGS (2)
  1. RADIOTHERAPY [Suspect]
     Indication: MULTIPLE MYELOMA
     Dosage: DOSE UNIT:CENTIGRAY
     Dates: start: 20080401
  2. CYCLOPHOSPHAMIDE [Suspect]
     Indication: MULTIPLE MYELOMA
     Route: 065
     Dates: start: 19981001

REACTIONS (3)
  - RECALL PHENOMENON [None]
  - MYOSITIS [None]
  - PANNICULITIS [None]
